FAERS Safety Report 6526166-5 (Version None)
Quarter: 2009Q4

REPORT INFORMATION
  Report Type: 
  Country: None (occurrence: None)
  Receive Date: 20091228
  Receipt Date: 20091215
  Transmission Date: 20100525
  Serious: Yes (Hospitalization)
  Sender: FDA-Public Use
  Company Number: 234519J09USA

PATIENT
  Age: 40 Year
  Sex: Female

DRUGS (9)
  1. REBIF [Suspect]
     Indication: MULTIPLE SCLEROSIS
     Dosage: 44 MCG, 3 IN 1 WEEKS, SUBCUTANEOUS
     Route: 058
     Dates: start: 20080312, end: 20090601
  2. PLAVIX [Concomitant]
  3. BACLOFEN [Concomitant]
  4. LORAZEPAM [Concomitant]
  5. ASPIRIN [Concomitant]
  6. DIOVAN [Concomitant]
  7. PRILOSEC [Concomitant]
  8. LEXAPRO [Concomitant]
  9. VITAMIN D [Concomitant]

REACTIONS (6)
  - BACK PAIN [None]
  - FALL [None]
  - INFECTION [None]
  - JOINT INJURY [None]
  - MYOCARDIAL INFARCTION [None]
  - SPINAL DISORDER [None]
